FAERS Safety Report 10177046 (Version 2)
Quarter: 2014Q2

REPORT INFORMATION
  Report Type: Spontaneous
  Country: ES (occurrence: ES)
  Receive Date: 20140516
  Receipt Date: 20140616
  Transmission Date: 20141212
  Serious: Yes (Hospitalization, Other)
  Sender: FDA-Public Use
  Company Number: ES-OTSUKA-EU-2014-10162

PATIENT
  Age: 55 Year
  Sex: Male

DRUGS (5)
  1. PLETAL [Suspect]
     Indication: INTERMITTENT CLAUDICATION
     Dosage: 100 MG MILLIGRAM(S), DAILY DOSE
     Route: 048
     Dates: start: 20140419, end: 20140427
  2. CO VALS [Suspect]
     Indication: PRODUCT USED FOR UNKNOWN INDICATION
     Dosage: 1 DF DOSAGE FORM, DAILY DOSE
     Route: 065
  3. OPIREN [Suspect]
     Indication: PRODUCT USED FOR UNKNOWN INDICATION
     Dosage: 15 MG MILLIGRAM(S), DAILY DOSE
     Route: 065
  4. ADIRO [Concomitant]
     Dosage: 100 MG MILLIGRAM(S), DAILY DOSE
     Route: 065
  5. ZARATOR                            /01326102/ [Concomitant]
     Dosage: 40 MG MILLIGRAM(S), DAILY DOSE
     Route: 065

REACTIONS (4)
  - Chest discomfort [Recovered/Resolved]
  - Ventricular tachycardia [Recovered/Resolved]
  - Muscular weakness [Recovered/Resolved]
  - Palpitations [Recovered/Resolved]
